FAERS Safety Report 13408567 (Version 3)
Quarter: 2020Q1

REPORT INFORMATION
  Report Type: Spontaneous
  Country: US (occurrence: US)
  Receive Date: 20170406
  Receipt Date: 20200306
  Transmission Date: 20200409
  Serious: No
  Sender: FDA-Public Use
  Company Number: US-JNJFOC-20170223648

PATIENT
  Sex: Male

DRUGS (13)
  1. RISPERDAL [Suspect]
     Active Substance: RISPERIDONE
     Dosage: 1MG IN MORNING, 0.5MG IN EVENING
     Route: 048
     Dates: start: 20010606, end: 20010711
  2. RISPERDAL [Suspect]
     Active Substance: RISPERIDONE
     Indication: BIPOLAR DISORDER
     Route: 048
     Dates: start: 19981118
  3. RISPERDAL [Suspect]
     Active Substance: RISPERIDONE
     Indication: AFFECTIVE DISORDER
     Route: 048
     Dates: start: 199812
  4. RISPERDAL [Suspect]
     Active Substance: RISPERIDONE
     Dosage: IN MORNING AND NOON
     Route: 048
     Dates: start: 20010808, end: 20011011
  5. RISPERDAL [Suspect]
     Active Substance: RISPERIDONE
     Indication: ATTENTION DEFICIT/HYPERACTIVITY DISORDER
     Route: 048
     Dates: start: 19981119
  6. RISPERDAL [Suspect]
     Active Substance: RISPERIDONE
     Dosage: 1 MG IN MORNING, NOON, 2 MG AT BEDTIME
     Route: 048
     Dates: start: 20021111, end: 20030514
  7. RISPERDAL [Suspect]
     Active Substance: RISPERIDONE
     Route: 048
     Dates: end: 20050514
  8. RISPERDAL [Suspect]
     Active Substance: RISPERIDONE
     Indication: BEHAVIOUR DISORDER
     Dosage: 0.5MG IN MORNING, 1MG IN EVENING
     Route: 048
     Dates: start: 19990214, end: 19990816
  9. RISPERDAL [Suspect]
     Active Substance: RISPERIDONE
     Dosage: 0.5MG IN MORNING, 2MG IN EVENING
     Route: 048
     Dates: start: 20020730, end: 20021010
  10. RISPERDAL [Suspect]
     Active Substance: RISPERIDONE
     Route: 048
     Dates: end: 19990915
  11. RISPERDAL [Suspect]
     Active Substance: RISPERIDONE
     Route: 048
     Dates: start: 19990923, end: 19991007
  12. RISPERDAL [Suspect]
     Active Substance: RISPERIDONE
     Dosage: ONCE IN MORNING, NOON
     Route: 048
     Dates: start: 19991026, end: 20000120
  13. RISPERDAL [Suspect]
     Active Substance: RISPERIDONE
     Dosage: VARYING DOSES OF 1MG, 2MG
     Route: 048
     Dates: start: 20011130, end: 20020614

REACTIONS (3)
  - Emotional distress [Unknown]
  - Gynaecomastia [Unknown]
  - Sedation [Unknown]
